FAERS Safety Report 15658180 (Version 1)
Quarter: 2018Q4

REPORT INFORMATION
  Report Type: Spontaneous
  Country: US (occurrence: US)
  Receive Date: 20181126
  Receipt Date: 20181126
  Transmission Date: 20190205
  Serious: No
  Sender: FDA-Public Use
  Company Number: US-SUNOVION-2018SUN004577

PATIENT
  Sex: Female
  Weight: 81.63 kg

DRUGS (3)
  1. LATUDA [Suspect]
     Active Substance: LURASIDONE HYDROCHLORIDE
     Dosage: 40 MG, QD
     Route: 048
     Dates: start: 2018, end: 201809
  2. LATUDA [Suspect]
     Active Substance: LURASIDONE HYDROCHLORIDE
     Dosage: 20 MG, QD
     Route: 048
     Dates: end: 2018
  3. CYPROHEPTADINE. [Concomitant]
     Active Substance: CYPROHEPTADINE
     Indication: SLEEP TERROR
     Dosage: 4 MG, UNK
     Route: 048
     Dates: start: 2018

REACTIONS (3)
  - Hallucination, auditory [Not Recovered/Not Resolved]
  - Mood swings [Not Recovered/Not Resolved]
  - Hallucination, visual [Not Recovered/Not Resolved]
